FAERS Safety Report 7561211-X (Version None)
Quarter: 2011Q2

REPORT INFORMATION
  Report Type: 
  Country: None (occurrence: None)
  Receive Date: 20110621
  Receipt Date: 20110222
  Transmission Date: 20111010
  Serious: No
  Sender: FDA-Public Use
  Company Number: US-ASTRAZENECA-2011SE09909

PATIENT
  Age: 56 Year
  Sex: Female
  Weight: 97.5 kg

DRUGS (23)
  1. CELEBREX [Concomitant]
     Indication: ARTHRITIS
  2. MEDROLL [Concomitant]
  3. CALCIUM CARBONATE [Concomitant]
  4. METFORMIN HCL [Concomitant]
  5. GABAPENTIN [Concomitant]
  6. VIT D [Concomitant]
  7. SINGULAIR [Concomitant]
     Indication: ASTHMA
  8. SENOKOT [Concomitant]
  9. PULMICORT [Suspect]
     Indication: ASTHMA
     Route: 055
     Dates: start: 20090101
  10. THEOPHYLIN [Concomitant]
     Indication: ASTHMA
  11. ALBUTEROL [Concomitant]
     Indication: ASTHMA
  12. SIMVASTATIN [Concomitant]
  13. TESSALON [Concomitant]
  14. SYMBICORT [Concomitant]
     Indication: ASTHMA
  15. LEVOTHYROXINE SODIUM [Concomitant]
  16. HYDROCODONE [Concomitant]
  17. VITAMIN TAB [Concomitant]
  18. FLONASE [Concomitant]
     Indication: HYPERSENSITIVITY
  19. DUONEB [Concomitant]
  20. VENTOLIN HFA [Concomitant]
     Indication: ASTHMA
  21. NEXIUM [Concomitant]
  22. ALENDRONATE SODIUM [Concomitant]
  23. ALPRAZOLAM [Concomitant]

REACTIONS (2)
  - DYSPNOEA [None]
  - WHEEZING [None]
